FAERS Safety Report 8623148-4 (Version None)
Quarter: 2012Q3

REPORT INFORMATION
  Report Type: 
  Country: None (occurrence: None)
  Receive Date: 20120827
  Receipt Date: 20120821
  Transmission Date: 20120928
  Serious: Yes (Other)
  Sender: FDA-Public Use
  Company Number: DE-AMGEN-DEUSP2012053120

PATIENT

DRUGS (2)
  1. CINACALCET HYDROCHLORIDE [Suspect]
     Indication: PRODUCT USED FOR UNKNOWN INDICATION
     Dosage: UNK
  2. AMIODARONE HYDROCHLORIDE [Concomitant]
     Dosage: UNK

REACTIONS (2)
  - NERVOUS SYSTEM DISORDER [None]
  - BALANCE DISORDER [None]
